FAERS Safety Report 25669422 (Version 1)
Quarter: 2025Q3

REPORT INFORMATION
  Report Type: Spontaneous
  Country: US (occurrence: US)
  Receive Date: 20250812
  Receipt Date: 20250812
  Transmission Date: 20251021
  Serious: No
  Sender: ALVOGEN
  Company Number: US-ALVOGEN-2024095999

PATIENT

DRUGS (1)
  1. PYRIDOSTIGMINE [Suspect]
     Active Substance: PYRIDOSTIGMINE
     Indication: Myasthenia gravis

REACTIONS (2)
  - Abdominal discomfort [Unknown]
  - Product availability issue [Unknown]
